FAERS Safety Report 8520954-1 (Version None)
Quarter: 2012Q3

REPORT INFORMATION
  Report Type: 
  Country: None (occurrence: None)
  Receive Date: 20120719
  Receipt Date: 20120706
  Transmission Date: 20120928
  Serious: Yes (Other)
  Sender: FDA-Public Use
  Company Number: BR-AMGEN-BRASP2012029961

PATIENT
  Age: 18 Year
  Sex: Female
  Weight: 47 kg

DRUGS (6)
  1. PRELONE [Concomitant]
     Dosage: 5 MG, 1X/DAY
     Dates: start: 20090101
  2. LISADOR [Concomitant]
     Indication: PAIN
     Dosage: AS NEEDED
  3. ENBREL [Suspect]
     Dosage: 50 MG, WEEKLY
     Route: 058
     Dates: start: 20111201
  4. KETOPROFEN [Suspect]
     Dosage: 400 MG, BID
     Dates: start: 20120201
  5. METHOTREXATE SODIUM [Concomitant]
  6. ENBREL [Suspect]
     Indication: RHEUMATOID ARTHRITIS
     Dosage: 50 MG, QWK
     Route: 058
     Dates: start: 20120422, end: 20120601

REACTIONS (11)
  - BREATH HOLDING [None]
  - BACK PAIN [None]
  - JOINT SWELLING [None]
  - PAIN IN EXTREMITY [None]
  - RASH MACULAR [None]
  - PYREXIA [None]
  - OEDEMA PERIPHERAL [None]
  - DEAFNESS [None]
  - INJECTION SITE PAIN [None]
  - ARTHRALGIA [None]
  - NASOPHARYNGITIS [None]
